FAERS Safety Report 6236627-4 (Version None)
Quarter: 2009Q2

REPORT INFORMATION
  Report Type: 
  Country: None (occurrence: None)
  Receive Date: 20090619
  Receipt Date: 20080804
  Transmission Date: 20091009
  Serious: No
  Sender: FDA-Public Use
  Company Number: US-ASTRAZENECA-2008UW15935

PATIENT
  Age: 74 Year
  Sex: Male
  Weight: 95.3 kg

DRUGS (2)
  1. ATACAND [Suspect]
     Indication: BLOOD PRESSURE
     Route: 048
     Dates: start: 20080731
  2. TRIAMTERENE AND HYDROCHLOROTHIAZIDE [Concomitant]

REACTIONS (3)
  - ANORECTAL DISCOMFORT [None]
  - GENITAL BURNING SENSATION [None]
  - PRURITUS GENITAL [None]
